FAERS Safety Report 15792057 (Version 1)
Quarter: 2019Q1

REPORT INFORMATION
  Report Type: Spontaneous
  Country: US (occurrence: US)
  Receive Date: 20190106
  Receipt Date: 20190106
  Transmission Date: 20190417
  Serious: No
  Sender: FDA-Public Use
  Company Number: US-ASTRAZENECA-2018SF70510

PATIENT
  Age: 78 Year
  Sex: Male

DRUGS (3)
  1. BYETTA [Suspect]
     Active Substance: EXENATIDE
     Route: 065
  2. BYETTA [Suspect]
     Active Substance: EXENATIDE
     Route: 065
  3. BYETTA [Suspect]
     Active Substance: EXENATIDE
     Route: 065

REACTIONS (2)
  - Memory impairment [Unknown]
  - Product dose omission [Unknown]
